FAERS Safety Report 9580097 (Version 1)
Quarter: 2013Q4

REPORT INFORMATION
  Report Type: Report from Study
  Country: US (occurrence: US)
  Receive Date: 20131002
  Receipt Date: 20131002
  Transmission Date: 20140711
  Serious: Yes (Hospitalization, Other)
  Sender: FDA-Public Use
  Company Number: US-ROCHE-1281063

PATIENT
  Sex: Male

DRUGS (3)
  1. ZELBORAF [Suspect]
     Indication: MALIGNANT MELANOMA
     Dosage: 4 TABLETS TWICE A DAY.
     Route: 065
     Dates: start: 20130410
  2. TYLENOL [Concomitant]
  3. VICODIN [Concomitant]

REACTIONS (13)
  - Tumour haemorrhage [Unknown]
  - Staphylococcal infection [Unknown]
  - Enterococcal infection [Unknown]
  - Weight increased [Unknown]
  - Fatigue [Unknown]
  - Erythema [Unknown]
  - Cough [Unknown]
  - Hypoaesthesia [Recovering/Resolving]
  - Local swelling [Recovering/Resolving]
  - Micturition urgency [Unknown]
  - Anaemia [Unknown]
  - Hypoalbuminaemia [Unknown]
  - Hyperbilirubinaemia [Unknown]
